FAERS Safety Report 7214950-4 (Version None)
Quarter: 2011Q1

REPORT INFORMATION
  Report Type: 
  Country: None (occurrence: None)
  Receive Date: 20110107
  Receipt Date: 20100603
  Transmission Date: 20110831
  Serious: No
  Sender: FDA-Public Use
  Company Number: A0862735A

PATIENT
  Age: 70 Year
  Sex: Female

DRUGS (6)
  1. BETAXOLOL [Concomitant]
     Dates: start: 20100301
  2. LOVAZA [Suspect]
     Dosage: 4CAP PER DAY
     Route: 048
     Dates: start: 20100101
  3. FOLIC ACID [Concomitant]
  4. PLAVIX [Concomitant]
  5. CALCIUM [Concomitant]
  6. VITAMIN TAB [Concomitant]

REACTIONS (1)
  - BACK PAIN [None]
